FAERS Safety Report 24248066 (Version 1)
Quarter: 2024Q3

REPORT INFORMATION
  Report Type: Spontaneous
  Country: ES (occurrence: ES)
  Receive Date: 20240826
  Receipt Date: 20240826
  Transmission Date: 20241017
  Serious: Yes (Death, Life-Threatening, Hospitalization, Other)
  Sender: MELINTA THERAPEUTICS
  Company Number: None

PATIENT

DRUGS (1)
  1. ORITAVANCIN [Suspect]
     Active Substance: ORITAVANCIN
     Indication: Product used for unknown indication
     Dosage: UNK
     Route: 042
     Dates: start: 20240709, end: 20240719

REACTIONS (4)
  - Multiple organ dysfunction syndrome [Fatal]
  - Pruritus [Fatal]
  - Nausea [Fatal]
  - Incorrect product administration duration [Fatal]

NARRATIVE: CASE EVENT DATE: 20240709
